FAERS Safety Report 24376988 (Version 2)
Quarter: 2024Q4

REPORT INFORMATION
  Report Type: Report from Study
  Country: US (occurrence: US)
  Receive Date: 20240930
  Receipt Date: 20241003
  Transmission Date: 20250115
  Serious: Yes (Hospitalization)
  Sender: ABBVIE
  Company Number: US-ABBVIE-5936832

PATIENT
  Sex: Female
  Weight: 55 kg

DRUGS (1)
  1. CREON [Suspect]
     Active Substance: PANCRELIPASE AMYLASE\PANCRELIPASE LIPASE\PANCRELIPASE PROTEASE
     Indication: Pancreatic failure
     Dosage: FORM STRENGTH: 36000 UNIT? FREQUENCY TEXT: 1 CAP PER MEALS: 1 CAP PER SNACK
     Route: 048
     Dates: start: 202408, end: 20240901

REACTIONS (4)
  - Cardiac failure [Recovering/Resolving]
  - Pneumonia [Unknown]
  - Atypical pneumonia [Recovering/Resolving]
  - Pancreatic cyst [Not Recovered/Not Resolved]

NARRATIVE: CASE EVENT DATE: 20240101
